FAERS Safety Report 6982639-2 (Version None)
Quarter: 2010Q3

REPORT INFORMATION
  Report Type: 
  Country: None (occurrence: None)
  Receive Date: 20100909
  Receipt Date: 20100831
  Transmission Date: 20110219
  Serious: Yes (Hospitalization)
  Sender: FDA-Public Use
  Company Number: US-GDP-10408039

PATIENT
  Sex: Female

DRUGS (1)
  1. ORACEA [Suspect]
     Dosage: 40 MG OD ORAL
     Route: 048

REACTIONS (1)
  - PANCREATITIS [None]
